FAERS Safety Report 21301294 (Version 3)
Quarter: 2022Q3

REPORT INFORMATION
  Report Type: Spontaneous
  Country: FR (occurrence: FR)
  Receive Date: 20220907
  Receipt Date: 20220914
  Transmission Date: 20221027
  Serious: Yes (Hospitalization, Other)
  Sender: FDA-Public Use
  Company Number: None

PATIENT
  Age: 68 Year
  Sex: Male
  Weight: 90 kg

DRUGS (10)
  1. TAMSULOSIN HYDROCHLORIDE [Suspect]
     Active Substance: TAMSULOSIN HYDROCHLORIDE
     Indication: Urinary retention
     Dosage: 5 MG (5 MG, UNKNOWN FREQ) (MECIR LP)
     Route: 048
     Dates: start: 20220707, end: 20220722
  2. FINASTERIDE [Suspect]
     Active Substance: FINASTERIDE
     Indication: Benign prostatic hyperplasia
     Dosage: 5 MG (5 MG, UNKNOWN FREQ) (CHIBRO-PROSCAR)
     Route: 048
     Dates: start: 20220707, end: 20220722
  3. CLOXACILLIN SODIUM [Suspect]
     Active Substance: CLOXACILLIN SODIUM
     Indication: Staphylococcal infection
     Dosage: 2 G, Q4H (2 G, EVERY 4 HOURS) (ORBENINE 1 G)
     Route: 042
     Dates: start: 20220706, end: 20220722
  4. AMLODIPINE BESYLATE [Suspect]
     Active Substance: AMLODIPINE BESYLATE
     Indication: Hypertension
     Dosage: 10 MG (10 MG, UNKNOWN FREQ) (AMLOR)
     Route: 048
     Dates: end: 20220722
  5. FINASTERIDE [Suspect]
     Active Substance: FINASTERIDE
     Indication: Benign prostatic hyperplasia
     Dosage: 5 MG
     Route: 048
     Dates: start: 20220707, end: 20220722
  6. ATENOLOL [Concomitant]
     Active Substance: ATENOLOL
     Indication: Myocardial ischaemia
     Dosage: 50 MG
     Route: 048
  7. FLUOXETINE [Concomitant]
     Active Substance: FLUOXETINE HYDROCHLORIDE
     Indication: Depression
     Dosage: 20 MG
     Route: 048
     Dates: end: 20220722
  8. ATORVASTATIN [Concomitant]
     Active Substance: ATORVASTATIN
     Indication: Hypercholesterolaemia
     Dosage: 40 MG
     Route: 048
  9. KARDEGIC [Concomitant]
     Active Substance: ASPIRIN DL-LYSINE
     Indication: Myocardial ischaemia
     Dosage: 160 MG
     Route: 048
     Dates: end: 20220721
  10. EZETIMIBE [Concomitant]
     Active Substance: EZETIMIBE
     Indication: Hypertension
     Dosage: 10 MG
     Route: 048

REACTIONS (1)
  - Cutaneous vasculitis [Recovered/Resolved]

NARRATIVE: CASE EVENT DATE: 20220722
